FAERS Safety Report 4544826-2 (Version None)
Quarter: 2005Q1

REPORT INFORMATION
  Report Type: 
  Country: None (occurrence: None)
  Receive Date: 20050105
  Receipt Date: 20041229
  Transmission Date: 20050727
  Serious: Yes (Disabling)
  Sender: FDA-Public Use
  Company Number: 2004AC01075

PATIENT
  Age: 51 Year
  Weight: 51 kg

DRUGS (2)
  1. ARIMIDEX [Suspect]
     Indication: AROMATASE INHIBITION THERAPY
     Dosage: 1 TABLET DAILY
     Dates: start: 20040318, end: 20040830
  2. SEROXAT [Concomitant]

REACTIONS (4)
  - CARPAL TUNNEL SYNDROME [None]
  - DYSAESTHESIA [None]
  - PARAESTHESIA [None]
  - PARESIS [None]
